FAERS Safety Report 6293281-3 (Version None)
Quarter: 2009Q3

REPORT INFORMATION
  Report Type: 
  Country: None (occurrence: None)
  Receive Date: 20090731
  Receipt Date: 20090723
  Transmission Date: 20100115
  Serious: Yes (Hospitalization)
  Sender: FDA-Public Use
  Company Number: US-AMGEN-QUU357131

PATIENT
  Sex: Female

DRUGS (1)
  1. ENBREL [Suspect]
     Indication: PSORIATIC ARTHROPATHY
     Route: 058
     Dates: start: 20080301

REACTIONS (4)
  - CARPAL TUNNEL DECOMPRESSION [None]
  - DELAYED RECOVERY FROM ANAESTHESIA [None]
  - JOINT ARTHROPLASTY [None]
  - LIMB OPERATION [None]
